FAERS Safety Report 8319310-0 (Version None)
Quarter: 2012Q2

REPORT INFORMATION
  Report Type: 
  Country: None (occurrence: None)
  Receive Date: 20120427
  Receipt Date: 20090910
  Transmission Date: 20120825
  Serious: No
  Sender: FDA-Public Use
  Company Number: US-TEVA-2009010303

PATIENT
  Sex: Male
  Weight: 93.978 kg

DRUGS (9)
  1. SINGULAIR [Concomitant]
     Indication: SEASONAL ALLERGY
     Dates: start: 20040101
  2. NUVIGIL [Suspect]
     Indication: SOMNOLENCE
     Dosage: 150 MILLIGRAM;
     Route: 048
     Dates: start: 20090820
  3. HYDROCHLOROT [Concomitant]
     Indication: DIURETIC THERAPY
  4. COUMADIN [Concomitant]
     Indication: ANTICOAGULANT THERAPY
     Dates: start: 20050101
  5. DIGOXIN [Concomitant]
     Indication: ATRIAL FIBRILLATION
     Dates: start: 20060101
  6. ASPIRIN [Concomitant]
     Indication: ANTICOAGULANT THERAPY
     Dates: start: 19940101
  7. CARDIZEM LA [Concomitant]
     Indication: ATRIAL FIBRILLATION
     Dates: start: 20060101
  8. LIPITOR [Concomitant]
     Indication: ATRIAL FIBRILLATION
     Dates: start: 20040101
  9. COSOPT [Concomitant]
     Indication: GLAUCOMA
     Dates: start: 19890101

REACTIONS (1)
  - NAUSEA [None]
